FAERS Safety Report 10935580 (Version 1)
Quarter: 2015Q1

REPORT INFORMATION
  Report Type: Spontaneous
  Country: FR (occurrence: FR)
  Receive Date: 20150320
  Receipt Date: 20150320
  Transmission Date: 20150721
  Serious: Yes (Hospitalization)
  Sender: FDA-Public Use
  Company Number: FR-ASTRAZENECA-2015SE24853

PATIENT
  Age: 17526 Day
  Sex: Male

DRUGS (4)
  1. XEROQUEL [Suspect]
     Active Substance: QUETIAPINE FUMARATE
     Route: 048
     Dates: start: 20150201
  2. VALIUM [Suspect]
     Active Substance: DIAZEPAM
     Dosage: ROCHE PRODUCT  (300MG  ONCE/SINGLE ADMINISTRATION)
     Route: 048
     Dates: start: 20150201
  3. LOXAPAC [Suspect]
     Active Substance: LOXAPINE SUCCINATE
     Dosage: ONE FLACON ONCE
     Route: 048
     Dates: start: 20150201
  4. LAROXYL [Suspect]
     Active Substance: AMITRIPTYLINE
     Route: 048

REACTIONS (6)
  - Intentional overdose [Unknown]
  - Depressed level of consciousness [Recovered/Resolved]
  - Confusional state [Recovered/Resolved]
  - Electrocardiogram QT prolonged [Recovered/Resolved]
  - Toxicity to various agents [Unknown]
  - Sinus tachycardia [Recovered/Resolved]

NARRATIVE: CASE EVENT DATE: 20150201
